FAERS Safety Report 12419886 (Version 2)
Quarter: 2016Q3

REPORT INFORMATION
  Report Type: Spontaneous
  Country: ES (occurrence: ES)
  Receive Date: 20160531
  Receipt Date: 20160909
  Transmission Date: 20161109
  Serious: Yes (Other)
  Sender: FDA-Public Use
  Company Number: ES-PFIZER INC-2016279067

PATIENT
  Sex: Male

DRUGS (11)
  1. DIAMICRON [Concomitant]
     Active Substance: GLICLAZIDE
     Dosage: 60 MG, 1X/DAY (0-1-0)
  2. OMEPRAZOL [Concomitant]
     Active Substance: OMEPRAZOLE
     Dosage: 20 MG, 1X/DAY (1-0-0)
  3. ACTOS [Concomitant]
     Active Substance: PIOGLITAZONE HYDROCHLORIDE
     Dosage: 15 MG, 1X/DAY (0-1-0)
  4. CARVEDILOL. [Concomitant]
     Active Substance: CARVEDILOL
     Dosage: 25 MG, 1X/DAY (1-0-0)
  5. LEXATIN [Concomitant]
     Active Substance: BROMAZEPAM
     Indication: ANXIETY
     Dosage: 3 MG, 1X/DAY (1-0-0)
  6. SINTROM [Concomitant]
     Active Substance: ACENOCOUMAROL
     Dosage: 4 MG, UNK
  7. TRADJENTA [Concomitant]
     Active Substance: LINAGLIPTIN
     Dosage: UNK, 1X/DAY (1-0-0)
  8. LORAZEPAM. [Concomitant]
     Active Substance: LORAZEPAM
     Dosage: 1 MG, 1X/DAY (0-0-0-1)
  9. CHAMPIX [Suspect]
     Active Substance: VARENICLINE TARTRATE
     Indication: SMOKING CESSATION THERAPY
     Dosage: 1 MG, UNK
     Dates: start: 201412
  10. LOSARTAN + HIDROCLOROTIAZIDA /01625701/ [Concomitant]
     Dosage: 50/12.5 MG, 1X/DAY (0-1-0)
  11. ATORVASTATIN [Concomitant]
     Active Substance: ATORVASTATIN
     Dosage: 40 MG, 1X/DAY (0-0-1)

REACTIONS (3)
  - Nightmare [Recovered/Resolved]
  - Homicidal ideation [Recovered/Resolved]
  - Suicidal ideation [Recovered/Resolved]

NARRATIVE: CASE EVENT DATE: 201412
